FAERS Safety Report 7784216-2 (Version None)
Quarter: 2011Q3

REPORT INFORMATION
  Report Type: 
  Country: None (occurrence: None)
  Receive Date: 20110928
  Receipt Date: 20110914
  Transmission Date: 20111222
  Serious: Yes (Other)
  Sender: FDA-Public Use
  Company Number: GB-TYCO HEALTHCARE/MALLINCKRODT-T201101838

PATIENT
  Age: 87 Year
  Sex: Male

DRUGS (3)
  1. TRAMADOL HCL [Suspect]
     Indication: PAIN
     Dosage: UNK
  2. ENTACAPONE [Concomitant]
     Dosage: 200 MG, TID
  3. CO-BENELDOPA [Concomitant]
     Dosage: 125 MG, TID

REACTIONS (1)
  - PARKINSON'S DISEASE [None]
